FAERS Safety Report 9832580 (Version 2)
Quarter: 2014Q1

REPORT INFORMATION
  Report Type: Spontaneous
  Country: US (occurrence: US)
  Receive Date: 20140121
  Receipt Date: 20140303
  Transmission Date: 20141002
  Serious: Yes (Death, Hospitalization)
  Sender: FDA-Public Use
  Company Number: US-PFIZER INC-2014015177

PATIENT
  Age: 52 Year
  Sex: Male

DRUGS (2)
  1. REVATIO [Suspect]
     Indication: PULMONARY HYPERTENSION
     Dosage: 20 MG, 3X/DAY
     Route: 048
     Dates: start: 20130712
  2. REVATIO [Suspect]
     Indication: HEART DISEASE CONGENITAL

REACTIONS (3)
  - Heart disease congenital [Fatal]
  - Multi-organ failure [Fatal]
  - Right ventricular failure [Fatal]
